FAERS Safety Report 9646455 (Version 4)
Quarter: 2014Q2

REPORT INFORMATION
  Report Type: Spontaneous
  Country: US (occurrence: US)
  Receive Date: 20131025
  Receipt Date: 20140516
  Transmission Date: 20141212
  Serious: Yes (Death, Hospitalization)
  Sender: FDA-Public Use
  Company Number: US-B.I. PHARMACEUTICALS,INC./RIDGEFIELD-2013-BI-34330BP

PATIENT
  Age: 79 Year
  Sex: Male
  Weight: 90.72 kg

DRUGS (27)
  1. PRADAXA [Suspect]
     Indication: ANTICOAGULANT THERAPY
     Dosage: 300 MG
     Route: 048
     Dates: start: 20110523, end: 20120802
  2. PRADAXA [Suspect]
     Indication: ATRIAL FIBRILLATION
  3. ALDACTONE [Concomitant]
     Route: 065
  4. CLARITIN [Concomitant]
     Dosage: 10 MG
     Route: 048
  5. COLACE [Concomitant]
     Route: 048
  6. FLONASE [Concomitant]
     Dosage: 0.1 MG
     Route: 045
  7. K-DUR [Concomitant]
     Dosage: 20 MEQ
     Route: 048
     Dates: start: 2011, end: 2012
  8. THERAGRAN MULTIVITAMIN [Concomitant]
     Route: 048
     Dates: start: 201204, end: 201208
  9. TRIAMTERENE-HCTZ [Concomitant]
     Route: 065
     Dates: start: 2007, end: 2011
  10. VASOTEC [Concomitant]
     Route: 065
     Dates: start: 2010, end: 2012
  11. VITAMIN D [Concomitant]
     Route: 065
     Dates: start: 2010, end: 2012
  12. ZANTAC [Concomitant]
     Route: 065
     Dates: start: 2007, end: 2012
  13. ZOFRAN [Concomitant]
     Dosage: 16 MG
     Route: 048
  14. LANTUS INSULIN [Concomitant]
     Dosage: 16 U
     Route: 058
     Dates: start: 2011, end: 2012
  15. LASIX [Concomitant]
     Dosage: 80 MG
     Route: 048
     Dates: start: 2007, end: 2012
  16. LIPITOR [Concomitant]
     Route: 065
     Dates: start: 2006, end: 2012
  17. LISINOPRIL [Concomitant]
     Route: 065
     Dates: start: 2010, end: 2012
  18. NEXIUM [Concomitant]
     Route: 065
     Dates: start: 2007, end: 2012
  19. PRILOSEC DR [Concomitant]
     Dosage: 20 MG
     Route: 048
     Dates: start: 2010, end: 2012
  20. PAXIL [Concomitant]
     Route: 065
     Dates: start: 2010, end: 2012
  21. PRILOSEC [Concomitant]
     Route: 065
  22. SYSTANE [Concomitant]
     Dosage: 10 ML
     Route: 031
  23. LACTULOSE [Concomitant]
     Route: 065
     Dates: start: 2011, end: 2012
  24. ZYLOPRIM [Concomitant]
     Dosage: 100 MG
     Route: 048
  25. TENORMIN [Concomitant]
     Dosage: 50 MG
     Route: 048
  26. CRESTOR [Concomitant]
     Dosage: 10 MG
     Route: 048
  27. NORCO [Concomitant]
     Route: 048

REACTIONS (3)
  - Haemorrhage intracranial [Fatal]
  - Cardio-respiratory arrest [Fatal]
  - Fall [Unknown]
